FAERS Safety Report 24317213 (Version 2)
Quarter: 2024Q4

REPORT INFORMATION
  Report Type: Spontaneous
  Country: US (occurrence: US)
  Receive Date: 20240913
  Receipt Date: 20241213
  Transmission Date: 20250115
  Serious: Yes (Hospitalization, Other)
  Sender: BRISTOL-MYERS SQUIBB COMPANY
  Company Number: US-BRISTOL-MYERS SQUIBB COMPANY-2024-141523

PATIENT
  Age: 85 Year
  Sex: Female

DRUGS (2)
  1. REBLOZYL [Suspect]
     Active Substance: LUSPATERCEPT-AAMT
     Indication: Anaemia of malignant disease
  2. REBLOZYL [Suspect]
     Active Substance: LUSPATERCEPT-AAMT
     Dosage: FOR ONE DOSE

REACTIONS (7)
  - Fatigue [Unknown]
  - Asthenia [Unknown]
  - Haemoglobin decreased [Unknown]
  - Hypoxia [Unknown]
  - Fluid retention [Unknown]
  - Cardiac failure [Unknown]
  - Therapy non-responder [Unknown]
